FAERS Safety Report 6544344-6 (Version None)
Quarter: 2010Q1

REPORT INFORMATION
  Report Type: 
  Country: None (occurrence: None)
  Receive Date: 20100120
  Receipt Date: 20100120
  Transmission Date: 20100710
  Serious: No
  Sender: FDA-Public Use
  Company Number: None

PATIENT
  Age: 12 Year
  Sex: Male
  Weight: 58.9676 kg

DRUGS (2)
  1. MOTRIN [Suspect]
     Indication: HEADACHE
     Dosage: 3 TABLETS EVERY 8 HOURS PO
     Route: 048
     Dates: start: 20090911, end: 20100111
  2. MOTRIN [Suspect]
     Indication: PAIN IN EXTREMITY
     Dosage: 3 TABLETS EVERY 8 HOURS PO
     Route: 048
     Dates: start: 20090911, end: 20100111

REACTIONS (7)
  - ABDOMINAL PAIN UPPER [None]
  - DIARRHOEA [None]
  - EDUCATIONAL PROBLEM [None]
  - NAUSEA [None]
  - POISONING [None]
  - PRODUCT QUALITY ISSUE [None]
  - VOMITING [None]
